FAERS Safety Report 7481407-5 (Version None)
Quarter: 2011Q2

REPORT INFORMATION
  Report Type: 
  Country: None (occurrence: None)
  Receive Date: 20110516
  Receipt Date: 20110507
  Transmission Date: 20111010
  Serious: Yes (Other)
  Sender: FDA-Public Use
  Company Number: US-AMGEN-USASP2011023829

PATIENT
  Age: 57 Year
  Sex: Female

DRUGS (5)
  1. PROLIA [Suspect]
     Dates: start: 20110201
  2. VITAMIN A [Concomitant]
  3. PROLIA [Suspect]
     Indication: OSTEOPOROSIS POSTMENOPAUSAL
     Dosage: UNK
     Dates: start: 20110201
  4. LIPITOR [Concomitant]
  5. CALCIUM [Concomitant]

REACTIONS (3)
  - BREAST CANCER [None]
  - IMPAIRED HEALING [None]
  - STAPHYLOCOCCAL INFECTION [None]
